FAERS Safety Report 5673824-0 (Version None)
Quarter: 2008Q1

REPORT INFORMATION
  Report Type: 
  Country: None (occurrence: None)
  Receive Date: 20080319
  Receipt Date: 20080312
  Transmission Date: 20080703
  Serious: Yes (Other)
  Sender: FDA-Public Use
  Company Number: US-PFIZER INC-2008023171

PATIENT

DRUGS (2)
  1. CAMPTOSAR [Suspect]
  2. GEMZAR [Suspect]

REACTIONS (1)
  - FLUID OVERLOAD [None]
